FAERS Safety Report 22146805 (Version 1)
Quarter: 2023Q1

REPORT INFORMATION
  Report Type: Spontaneous
  Country: JP (occurrence: JP)
  Receive Date: 20230328
  Receipt Date: 20230328
  Transmission Date: 20230417
  Serious: Yes (Other)
  Sender: FDA-Public Use
  Company Number: JP-SANOFI-AVENTIS R+D-2022SA505641

PATIENT

DRUGS (3)
  1. HYDROXYCHLOROQUINE SULFATE [Suspect]
     Active Substance: HYDROXYCHLOROQUINE SULFATE
     Indication: Systemic lupus erythematosus
     Dosage: 200 MG, QD  (FILM-COATED TABLET)
     Route: 048
     Dates: start: 20200128, end: 20200302
  2. CEPHARANTHINE [Concomitant]
     Active Substance: CEPHARANTHINE
     Indication: Alopecia
     Dosage: 0.3 G, BID
     Route: 048
  3. CINAL [ASCORBIC ACID;CALCIUM PANTOTHENATE] [Concomitant]
     Indication: Post inflammatory pigmentation change
     Dosage: 1 SACHET, BID
     Route: 048

REACTIONS (5)
  - Somnolence [Recovered/Resolved]
  - Dizziness [Recovered/Resolved]
  - Hypoglycaemia [Recovered/Resolved]
  - Malaise [Unknown]
  - Palpitations [Unknown]

NARRATIVE: CASE EVENT DATE: 20200131
